FAERS Safety Report 5142366-3 (Version None)
Quarter: 2006Q4

REPORT INFORMATION
  Report Type: 
  Country: None (occurrence: None)
  Receive Date: 20061102
  Receipt Date: 20060602
  Transmission Date: 20070319
  Serious: Yes (Life-Threatening, Hospitalization)
  Sender: FDA-Public Use
  Company Number: FR-GLAXOSMITHKLINE-B0426281A

PATIENT
  Age: 51 Year
  Sex: Female

DRUGS (4)
  1. DEROXAT [Suspect]
     Indication: DEPRESSION
     Route: 048
     Dates: start: 20040115, end: 20060424
  2. SLIMMING TABLETS [Suspect]
     Dosage: 2TAB TWICE PER DAY
     Route: 048
     Dates: start: 20060325, end: 20060423
  3. LEXOMIL [Concomitant]
     Route: 048
  4. ZOLPIDEM TARTRATE [Concomitant]
     Route: 048

REACTIONS (6)
  - BALANCE DISORDER [None]
  - CHOLESTASIS [None]
  - FALL [None]
  - HEPATIC FAILURE [None]
  - HEPATITIS FULMINANT [None]
  - SOMNOLENCE [None]
